FAERS Safety Report 7785814-2 (Version None)
Quarter: 2011Q3

REPORT INFORMATION
  Report Type: 
  Country: None (occurrence: None)
  Receive Date: 20110929
  Receipt Date: 20110920
  Transmission Date: 20111222
  Serious: Yes (Hospitalization)
  Sender: FDA-Public Use
  Company Number: US-BAYER-2011-005004

PATIENT
  Age: 17 Year
  Sex: Female
  Weight: 41 kg

DRUGS (3)
  1. YAZ [Suspect]
     Indication: PREMENSTRUAL SYNDROME
     Dosage: UNK
     Dates: start: 20080101, end: 20100701
  2. LOTRONEX [Concomitant]
     Indication: IRRITABLE BOWEL SYNDROME
     Dosage: UNK UNK, QD
     Dates: start: 20070101, end: 20100101
  3. YAZ [Suspect]

REACTIONS (6)
  - GALLBLADDER DISORDER [None]
  - INJURY [None]
  - CHOLECYSTITIS CHRONIC [None]
  - PANCREATITIS [None]
  - PAIN [None]
  - EMOTIONAL DISTRESS [None]
